FAERS Safety Report 7108651-0 (Version None)
Quarter: 2010Q4

REPORT INFORMATION
  Report Type: 
  Country: None (occurrence: None)
  Receive Date: 20101117
  Receipt Date: 20101108
  Transmission Date: 20110411
  Serious: Yes (Other)
  Sender: FDA-Public Use
  Company Number: US-ROCHE-740091

PATIENT
  Sex: Female
  Weight: 52.6 kg

DRUGS (2)
  1. BONIVA [Suspect]
     Indication: OSTEOPOROSIS
     Dosage: DURATION: 1 OR 2 YEARS
     Route: 048
  2. COUMADIN [Concomitant]

REACTIONS (5)
  - ATRIAL FIBRILLATION [None]
  - BREAST CANCER [None]
  - DRUG DOSE OMISSION [None]
  - NO THERAPEUTIC RESPONSE [None]
  - RHEUMATOID ARTHRITIS [None]
